FAERS Safety Report 5624510-4 (Version None)
Quarter: 2008Q1

REPORT INFORMATION
  Report Type: 
  Country: None (occurrence: None)
  Receive Date: 20080213
  Receipt Date: 20080205
  Transmission Date: 20080703
  Serious: Yes (Other)
  Sender: FDA-Public Use
  Company Number: US-BAYER-200714102BWH

PATIENT
  Age: 42 Year
  Sex: Female

DRUGS (5)
  1. AVELOX [Suspect]
     Indication: BRONCHITIS
     Dosage: TOTAL DAILY DOSE: 400 MG  UNIT DOSE: 400 MG
     Route: 048
     Dates: start: 20071023, end: 20071023
  2. MUCINEX [Suspect]
     Indication: BRONCHITIS
  3. AUGMENTIN '250' [Concomitant]
  4. NAPROSYN [Concomitant]
  5. SYNTHROID [Concomitant]

REACTIONS (15)
  - ANAPHYLACTIC SHOCK [None]
  - ANXIETY [None]
  - BLOOD PRESSURE SYSTOLIC DECREASED [None]
  - CHOKING SENSATION [None]
  - DIZZINESS [None]
  - LOSS OF CONSCIOUSNESS [None]
  - OEDEMA PERIPHERAL [None]
  - PRURITUS [None]
  - PRURITUS GENERALISED [None]
  - PULSE ABSENT [None]
  - RESTLESSNESS [None]
  - SWELLING [None]
  - TACHYCARDIA [None]
  - URTICARIA [None]
  - VULVOVAGINAL PRURITUS [None]
